FAERS Safety Report 5882069-0 (Version None)
Quarter: 2008Q3

REPORT INFORMATION
  Report Type: 
  Country: None (occurrence: None)
  Receive Date: 20080912
  Receipt Date: 20080807
  Transmission Date: 20090109
  Serious: No
  Sender: FDA-Public Use
  Company Number: US-ABBOTT-08P-163-0465361-00

PATIENT
  Sex: Female
  Weight: 81.72 kg

DRUGS (14)
  1. HUMIRA [Suspect]
     Indication: CROHN'S DISEASE
     Route: 050
     Dates: start: 20070101
  2. HUMIRA [Suspect]
  3. LOPERAMIDE HCL [Concomitant]
     Indication: DIARRHOEA
     Route: 048
  4. BUDESONIDE [Concomitant]
     Indication: STEROID THERAPY
     Route: 048
  5. ALENDRONATE SODIUM [Concomitant]
     Indication: RESORPTION BONE INCREASED
     Route: 048
  6. COUMADIN [Concomitant]
     Indication: ANTICOAGULANT THERAPY
     Route: 048
  7. PAROXETINE HCL [Concomitant]
     Indication: DRUG USE FOR UNKNOWN INDICATION
     Route: 048
  8. CITRACAL + D [Concomitant]
     Indication: MINERAL SUPPLEMENTATION
     Route: 048
  9. FENTANYL [Concomitant]
     Indication: PAIN
     Route: 062
  10. CYANOCOBALAMIN [Concomitant]
     Indication: VITAMIN SUPPLEMENTATION
     Dosage: SHOT
     Route: 050
  11. ONDANSETRON [Concomitant]
     Indication: ANTIEMETIC SUPPORTIVE CARE
     Route: 048
  12. TYLENOL W/ CODEINE NO. 3 [Concomitant]
     Indication: PAIN
     Route: 048
  13. ENOXAPARIN SODIUM [Concomitant]
     Indication: ANTICOAGULANT THERAPY
     Route: 050
  14. ALPRAZOLAM [Concomitant]
     Indication: ANXIETY
     Route: 048

REACTIONS (4)
  - ARTHRALGIA [None]
  - DRUG INEFFECTIVE [None]
  - ERYTHEMA [None]
  - JOINT SWELLING [None]
